FAERS Safety Report 18373990 (Version 1)
Quarter: 2020Q4

REPORT INFORMATION
  Report Type: Spontaneous
  Country: US (occurrence: US)
  Receive Date: 20201012
  Receipt Date: 20201012
  Transmission Date: 20210114
  Serious: Yes (Hospitalization, Other)
  Sender: FDA-Public Use
  Company Number: US-PURDUE-USA-2020-0170024

PATIENT
  Sex: Male

DRUGS (3)
  1. HEROIN [Suspect]
     Active Substance: DIAMORPHINE
     Indication: PRODUCT USED FOR UNKNOWN INDICATION
     Dosage: UNK
     Route: 065
  2. OXYCODONE HYDROCHLORIDE (SIMILAR TO NDA 22-272) [Suspect]
     Active Substance: OXYCODONE HYDROCHLORIDE
     Indication: PAIN
     Dosage: UNK
     Route: 048
  3. OXYCONTIN [Suspect]
     Active Substance: OXYCODONE HYDROCHLORIDE
     Indication: PAIN
     Dosage: UNK
     Route: 048

REACTIONS (17)
  - Myocardial infarction [Unknown]
  - Device related infection [Unknown]
  - Ligament rupture [Unknown]
  - Pain [Unknown]
  - Diabetes mellitus [Unknown]
  - Cardiac disorder [Unknown]
  - Mental disorder [Unknown]
  - Meniscus injury [Unknown]
  - Drug dependence [Unknown]
  - Injury [Unknown]
  - Overdose [Unknown]
  - Joint injury [Unknown]
  - General physical condition abnormal [Unknown]
  - Drug abuse [Unknown]
  - Surgery [Unknown]
  - Condition aggravated [Unknown]
  - Asthenia [Unknown]
